FAERS Safety Report 7902615-2 (Version None)
Quarter: 2011Q4

REPORT INFORMATION
  Report Type: 
  Country: None (occurrence: None)
  Receive Date: 20111108
  Receipt Date: 20111103
  Transmission Date: 20120403
  Serious: Yes (Hospitalization)
  Sender: FDA-Public Use
  Company Number: NL-ROCHE-1003382

PATIENT
  Sex: Female

DRUGS (3)
  1. XELODA [Suspect]
     Indication: RECTAL CANCER
     Route: 048
     Dates: start: 20110426, end: 20110511
  2. PROPANOLOLI HYDROCHLORIDUM [Concomitant]
  3. DIPHANTOINE [Concomitant]

REACTIONS (6)
  - URINARY RETENTION [None]
  - MALAISE [None]
  - DEPRESSION [None]
  - WEIGHT DECREASED [None]
  - DECREASED APPETITE [None]
  - DEHYDRATION [None]
